FAERS Safety Report 8006840-4 (Version None)
Quarter: 2011Q4

REPORT INFORMATION
  Report Type: 
  Country: None (occurrence: None)
  Receive Date: 20111227
  Receipt Date: 20111221
  Transmission Date: 20120403
  Serious: Yes (Hospitalization)
  Sender: FDA-Public Use
  Company Number: PHEH2011US012340

PATIENT
  Sex: Male

DRUGS (2)
  1. CYSTON [Concomitant]
  2. TOBI [Suspect]
     Dosage: 300 MG, BID

REACTIONS (2)
  - DISEASE COMPLICATION [None]
  - CYSTIC FIBROSIS [None]
